FAERS Safety Report 6087832-1 (Version None)
Quarter: 2009Q1

REPORT INFORMATION
  Report Type: 
  Country: None (occurrence: None)
  Receive Date: 20090219
  Receipt Date: 20081113
  Transmission Date: 20090719
  Serious: No
  Sender: FDA-Public Use
  Company Number: WAES 0612USA02667

PATIENT
  Age: 88 Year
  Sex: Female

DRUGS (6)
  1. JANUVIA [Suspect]
     Indication: TYPE 2 DIABETES MELLITUS
     Dosage: 100 MG/DAILY/PO
     Route: 048
     Dates: start: 20061122
  2. ACTONEL [Concomitant]
  3. AMARYL [Concomitant]
  4. BENICAR [Concomitant]
  5. COZAAR [Concomitant]
  6. SULLA [Concomitant]

REACTIONS (4)
  - BLOOD GLUCOSE INCREASED [None]
  - LACRIMATION INCREASED [None]
  - NASAL CONGESTION [None]
  - VISION BLURRED [None]
